FAERS Safety Report 12183666 (Version 3)
Quarter: 2019Q3

REPORT INFORMATION
  Report Type: Spontaneous
  Country: US (occurrence: US)
  Receive Date: 20160316
  Receipt Date: 20190909
  Transmission Date: 20191004
  Serious: No
  Sender: FDA-Public Use
  Company Number: US-PFIZER INC-2016146197

PATIENT
  Age: 57 Year
  Sex: Female
  Weight: 50.79 kg

DRUGS (2)
  1. NEURONTIN [Suspect]
     Active Substance: GABAPENTIN
     Indication: ILL-DEFINED DISORDER
  2. NEURONTIN [Suspect]
     Active Substance: GABAPENTIN
     Indication: FACIAL PAIN
     Dosage: 450 MG, DAILY (150 MG IN THE MORNING AND 300 MG AT PM)

REACTIONS (8)
  - Nervous system disorder [Unknown]
  - Pre-existing condition improved [Unknown]
  - Drug ineffective for unapproved indication [Unknown]
  - Off label use [Unknown]
  - Therapeutic response unexpected [Unknown]
  - Panic attack [Unknown]
  - Fall [Unknown]
  - Hyperhidrosis [Unknown]
